FAERS Safety Report 8552070-7 (Version None)
Quarter: 2012Q3

REPORT INFORMATION
  Report Type: 
  Country: None (occurrence: None)
  Receive Date: 20120731
  Receipt Date: 20120723
  Transmission Date: 20120928
  Serious: Yes (Hospitalization)
  Sender: FDA-Public Use
  Company Number: US-BIOGENIDEC-2012BI022781

PATIENT
  Age: 63 Year
  Sex: Female

DRUGS (4)
  1. AVONEX [Suspect]
     Route: 030
     Dates: start: 20030101, end: 20120601
  2. BLOOD PRESSURE MEDICATION (NOS) [Concomitant]
     Indication: HYPERTENSION
  3. AVONEX [Suspect]
     Indication: MULTIPLE SCLEROSIS
     Route: 030
     Dates: start: 19970401, end: 20030101
  4. AVONEX [Suspect]
     Route: 030
     Dates: start: 20120601

REACTIONS (8)
  - NASOPHARYNGITIS [None]
  - COLITIS ISCHAEMIC [None]
  - BLOOD PRESSURE INCREASED [None]
  - H1N1 INFLUENZA [None]
  - INFLUENZA LIKE ILLNESS [None]
  - DECREASED IMMUNE RESPONSIVENESS [None]
  - PNEUMONIA [None]
  - WEIGHT DECREASED [None]
